FAERS Safety Report 6890358-6 (Version None)
Quarter: 2010Q3

REPORT INFORMATION
  Report Type: 
  Country: None (occurrence: None)
  Receive Date: 20100730
  Receipt Date: 20081006
  Transmission Date: 20110219
  Serious: No
  Sender: FDA-Public Use
  Company Number: US-PFIZER INC-2008084250

PATIENT
  Age: 76 Year
  Sex: Female
  Weight: 74.84 kg

DRUGS (3)
  1. LOMOTIL [Suspect]
  2. DIPHENOXYLATE HYDROCHLORIDE [Concomitant]
  3. ALDARA [Concomitant]
     Dates: start: 20080903

REACTIONS (1)
  - ABDOMINAL PAIN [None]
